FAERS Safety Report 17047595 (Version 1)
Quarter: 2019Q4

REPORT INFORMATION
  Report Type: Spontaneous
  Country: AR (occurrence: AR)
  Receive Date: 20191119
  Receipt Date: 20191119
  Transmission Date: 20200122
  Serious: Yes (Other)
  Sender: FDA-Public Use
  Company Number: AR-PFIZER INC-2019369758

PATIENT
  Age: 70 Year
  Sex: Female

DRUGS (2)
  1. XELJANZ [Suspect]
     Active Substance: TOFACITINIB CITRATE
     Dosage: 5 MG, 1X/DAY
     Dates: start: 201909
  2. XELJANZ [Suspect]
     Active Substance: TOFACITINIB CITRATE
     Indication: RHEUMATOID ARTHRITIS
     Dosage: 5 MG, 2X/DAY
     Dates: start: 20181221, end: 201909

REACTIONS (9)
  - Cataract [Not Recovered/Not Resolved]
  - Herpes zoster [Unknown]
  - Peripheral swelling [Unknown]
  - Headache [Recovering/Resolving]
  - Bronchitis [Recovered/Resolved]
  - Pain [Recovering/Resolving]
  - Arthralgia [Unknown]
  - Pruritus [Unknown]
  - Malaise [Recovering/Resolving]

NARRATIVE: CASE EVENT DATE: 20190705
